FAERS Safety Report 13705986 (Version 1)
Quarter: 2017Q2

REPORT INFORMATION
  Report Type: Spontaneous
  Country: FR (occurrence: FR)
  Receive Date: 20170630
  Receipt Date: 20170630
  Transmission Date: 20170830
  Serious: Yes (Hospitalization)
  Sender: FDA-Public Use
  Company Number: PHHY2017FR091594

PATIENT
  Age: 59 Year
  Sex: Male

DRUGS (6)
  1. AMOXICILLIN AND CLAVULANATE POTASSIUM [Suspect]
     Active Substance: AMOXICILLIN\CLAVULANATE POTASSIUM
     Indication: STAPHYLOCOCCAL SEPSIS
     Dosage: 1 DF, TID
     Route: 042
     Dates: start: 20170522, end: 20170529
  2. AUGMENTIN [Suspect]
     Active Substance: AMOXICILLIN\CLAVULANATE POTASSIUM
     Indication: STAPHYLOCOCCAL SEPSIS
     Dosage: 1 DF, TID
     Route: 048
     Dates: start: 20170529, end: 20170607
  3. JANUVIA [Concomitant]
     Active Substance: SITAGLIPTIN PHOSPHATE
     Indication: TYPE 2 DIABETES MELLITUS
     Dosage: 100 MG, QD
     Route: 048
     Dates: start: 20170527
  4. METFORMINE ARROW [Concomitant]
     Active Substance: METFORMIN HYDROCHLORIDE
     Indication: TYPE 2 DIABETES MELLITUS
     Dosage: 500 MG, TID
     Route: 048
     Dates: start: 20170524
  5. OFLOXACINE [Suspect]
     Active Substance: OFLOXACIN
     Indication: STAPHYLOCOCCAL SEPSIS
     Dosage: 200 MG, BID
     Route: 048
     Dates: start: 20170525, end: 20170607
  6. ENALAPRIL EG [Concomitant]
     Active Substance: ENALAPRIL
     Indication: DIABETIC NEPHROPATHY
     Dosage: 5 MG, QD
     Route: 048
     Dates: start: 20170525

REACTIONS (1)
  - Vascular purpura [Recovering/Resolving]

NARRATIVE: CASE EVENT DATE: 20170604
